FAERS Safety Report 22600493 (Version 1)
Quarter: 2023Q2

REPORT INFORMATION
  Report Type: Spontaneous
  Country: US (occurrence: None)
  Receive Date: 20230613
  Receipt Date: 20230613
  Transmission Date: 20230722
  Serious: No
  Sender: FDA-Public Use
  Company Number: None

PATIENT
  Age: 64 Year
  Sex: Female
  Weight: 75.6 kg

DRUGS (11)
  1. NEBIVOLOL [Suspect]
     Active Substance: NEBIVOLOL
     Indication: Chest discomfort
     Dosage: OTHER QUANTITY : 1 TABLET(S);?FREQUENCY : AT BEDTIME;?
     Route: 048
     Dates: start: 20230610, end: 20230611
  2. ARMOUR THYROID [Concomitant]
     Active Substance: THYROID, PORCINE
  3. ResMed AirCurve [Concomitant]
  4. VITAMIN B6 [Concomitant]
     Active Substance: PYRIDOXINE HYDROCHLORIDE
  5. Vitamins B12 [Concomitant]
  6. Vitamins D [Concomitant]
  7. MAGNESIUM [Concomitant]
     Active Substance: MAGNESIUM
  8. FISH OIL [Concomitant]
     Active Substance: FISH OIL
  9. CRANBERRY [Concomitant]
     Active Substance: CRANBERRY
  10. complete amino acid capsule [Concomitant]
  11. DEVICE [Concomitant]
     Active Substance: DEVICE

REACTIONS (6)
  - Insomnia [None]
  - Abdominal pain upper [None]
  - Nausea [None]
  - Decreased appetite [None]
  - Therapy cessation [None]
  - Drug intolerance [None]

NARRATIVE: CASE EVENT DATE: 20230610
